FAERS Safety Report 26126323 (Version 1)
Quarter: 2025Q4

REPORT INFORMATION
  Report Type: Spontaneous
  Country: EU (occurrence: EU)
  Receive Date: 20251205
  Receipt Date: 20251205
  Transmission Date: 20260118
  Serious: Yes (Death)
  Sender: FRESENIUS KABI
  Company Number: None

PATIENT
  Age: 18 Year
  Sex: Male
  Weight: 65 kg

DRUGS (1)
  1. PROPOFOL [Suspect]
     Active Substance: PROPOFOL
     Indication: Sedation
     Dosage: 350 MG/H ON 09/11?480 MG/H ON 10/11?100 MG/H ON 11/11?STOPPED ON 12/11
     Route: 042
     Dates: start: 20251109, end: 20251112

REACTIONS (1)
  - Propofol infusion syndrome [Fatal]

NARRATIVE: CASE EVENT DATE: 20251113
